FAERS Safety Report 7798883-0 (Version None)
Quarter: 2011Q4

REPORT INFORMATION
  Report Type: 
  Country: None (occurrence: None)
  Receive Date: 20111006
  Receipt Date: 20110927
  Transmission Date: 20120403
  Serious: Yes (Other)
  Sender: FDA-Public Use
  Company Number: US-JNJFOC-20110911125

PATIENT
  Age: 70 Year
  Sex: Male
  Weight: 92.08 kg

DRUGS (1)
  1. REMICADE [Suspect]
     Indication: PSORIASIS
     Route: 042
     Dates: start: 20060101

REACTIONS (1)
  - HEPATIC NEOPLASM MALIGNANT [None]
